FAERS Safety Report 4926738-5 (Version None)
Quarter: 2006Q1

REPORT INFORMATION
  Report Type: 
  Country: None (occurrence: None)
  Receive Date: 20060228
  Receipt Date: 20050607
  Transmission Date: 20060701
  Serious: No
  Sender: FDA-Public Use
  Company Number: US-GLAXOSMITHKLINE-A0561595A

PATIENT
  Age: 42 Year
  Sex: Male

DRUGS (8)
  1. LAMICTAL [Suspect]
     Indication: BIPOLAR DISORDER
     Dosage: 25MG VARIABLE DOSE
     Route: 048
     Dates: start: 20050604
  2. EFFEXOR [Concomitant]
  3. SINEMET [Concomitant]
  4. TENORETIC 100 [Concomitant]
  5. ZOCOR [Concomitant]
  6. NORVASC [Concomitant]
  7. PROVIGIL [Concomitant]
  8. MULTI-VITAMIN [Concomitant]

REACTIONS (5)
  - BLOOD URINE PRESENT [None]
  - CYSTITIS [None]
  - FATIGUE [None]
  - PROSTATITIS [None]
  - PYREXIA [None]
